FAERS Safety Report 5006787-1 (Version None)
Quarter: 2006Q2

REPORT INFORMATION
  Report Type: 
  Country: None (occurrence: None)
  Receive Date: 20060516
  Receipt Date: 20060509
  Transmission Date: 20061013
  Serious: Yes (Hospitalization)
  Sender: FDA-Public Use
  Company Number: GXKR2006CL02371

PATIENT
  Age: 84 Year
  Sex: Female

DRUGS (5)
  1. LOSARTAN (NGX)(LOSARTAN) [Suspect]
     Indication: HYPERTENSION
     Dosage: 50 MG, QD, ORAL
     Route: 048
  2. SPIRONOLACTONE [Suspect]
     Indication: HYPERTENSION
     Dosage: 25 MG, QD, ORAL
     Route: 048
  3. CARVEDILOL [Concomitant]
  4. HYDROCHLOROTHIAZIDE [Concomitant]
  5. AMLODIPINE [Concomitant]

REACTIONS (12)
  - ANGINA PECTORIS [None]
  - BLOOD CREATINE PHOSPHOKINASE INCREASED [None]
  - BRADYCARDIA [None]
  - DIARRHOEA [None]
  - DRUG INTERACTION [None]
  - ELECTROCARDIOGRAM ABNORMAL [None]
  - ELECTROCARDIOGRAM ST SEGMENT DEPRESSION [None]
  - HAEMODIALYSIS [None]
  - HYPERKALAEMIA [None]
  - MYOGLOBIN BLOOD INCREASED [None]
  - RESPIRATORY DEPRESSION [None]
  - SOMNOLENCE [None]
